FAERS Safety Report 20254184 (Version 1)
Quarter: 2021Q4

REPORT INFORMATION
  Report Type: Report from Study
  Country: KE (occurrence: KE)
  Receive Date: 20211230
  Receipt Date: 20211230
  Transmission Date: 20220303
  Serious: Yes (Life-Threatening, Hospitalization, Other)
  Sender: FDA-Public Use
  Company Number: KE-CIPLA LTD.-2021KE02435

PATIENT

DRUGS (8)
  1. LOPINAVIR\RITONAVIR [Suspect]
     Active Substance: LOPINAVIR\RITONAVIR
     Indication: HIV infection
     Dosage: 320/80MG DAILY (BID)
     Route: 048
     Dates: start: 20171120, end: 20180213
  2. LOPINAVIR\RITONAVIR [Suspect]
     Active Substance: LOPINAVIR\RITONAVIR
     Dosage: 400/100MG DAILY (BID)
     Route: 048
     Dates: start: 20180214, end: 20180527
  3. LOPINAVIR\RITONAVIR [Suspect]
     Active Substance: LOPINAVIR\RITONAVIR
     Dosage: 320/80MG DAILY (BID)
     Route: 048
     Dates: start: 20180528, end: 20180729
  4. LOPINAVIR\RITONAVIR [Suspect]
     Active Substance: LOPINAVIR\RITONAVIR
     Dosage: 400/100MG DAILY (BID)
     Route: 048
     Dates: start: 20180730, end: 20181022
  5. ABACAVIR\LAMIVUDINE [Suspect]
     Active Substance: ABACAVIR\LAMIVUDINE
     Indication: HIV infection
     Dosage: 240/120MG DAILY (BID)
     Route: 048
     Dates: start: 20171120, end: 20180213
  6. ABACAVIR\LAMIVUDINE [Suspect]
     Active Substance: ABACAVIR\LAMIVUDINE
     Dosage: 300/150MG DAILY (BID)
     Route: 048
     Dates: start: 20180214, end: 20180527
  7. ABACAVIR\LAMIVUDINE [Suspect]
     Active Substance: ABACAVIR\LAMIVUDINE
     Dosage: 240/120MG DAILY (BID)
     Route: 048
     Dates: start: 20180528, end: 20180729
  8. ABACAVIR\LAMIVUDINE [Suspect]
     Active Substance: ABACAVIR\LAMIVUDINE
     Dosage: 300/150 MG DAILY (BID)
     Route: 048
     Dates: start: 20180730, end: 20181022

REACTIONS (3)
  - Anaemia [Recovering/Resolving]
  - Respiratory tract infection [Recovered/Resolved]
  - Skin bacterial infection [Recovered/Resolved]

NARRATIVE: CASE EVENT DATE: 20181020
